FAERS Safety Report 6234078-X (Version None)
Quarter: 2009Q2

REPORT INFORMATION
  Report Type: 
  Country: None (occurrence: None)
  Receive Date: 20090618
  Receipt Date: 20090612
  Transmission Date: 20091009
  Serious: Yes (Hospitalization)
  Sender: FDA-Public Use
  Company Number: DE-EISAI INC.-E2020-04754-SPO-DE

PATIENT
  Sex: Female

DRUGS (6)
  1. ARICEPT [Suspect]
     Route: 048
  2. RISPERDAL [Suspect]
     Indication: DELUSION
     Dosage: .0.5- 1.5
     Route: 048
     Dates: start: 20090128, end: 20090221
  3. RISPERDAL [Suspect]
     Route: 048
     Dates: start: 20090223, end: 20090311
  4. DIGITOXIN TAB [Concomitant]
     Route: 048
  5. BISOPROLOL [Concomitant]
     Indication: HYPERTENSION
     Route: 048
  6. IDEOS [Concomitant]
     Indication: HYPERTENSION
     Dosage: 1 TABLET
     Route: 048

REACTIONS (1)
  - PLEUROTHOTONUS [None]
